FAERS Safety Report 7436975-6 (Version None)
Quarter: 2011Q2

REPORT INFORMATION
  Report Type: 
  Country: None (occurrence: None)
  Receive Date: 20110418
  Receipt Date: 20110401
  Transmission Date: 20111010
  Serious: Yes (Life-Threatening, Hospitalization)
  Sender: FDA-Public Use
  Company Number: 2011001614

PATIENT
  Age: 49 Year
  Sex: Female

DRUGS (20)
  1. TORISEL [Suspect]
     Indication: BREAST CANCER METASTATIC
     Dosage: (15 MG, QD), INTRAVENOUS
     Route: 042
     Dates: start: 20110227
  2. BENADRYL [Concomitant]
  3. DECADRON [Concomitant]
  4. LOVENOX [Concomitant]
  5. ARIXTRA [Concomitant]
  6. VIBRAMYCIN (DOXYCYCLINE HYCLATE) [Concomitant]
  7. COMPAZINE [Concomitant]
  8. CISPLATIN [Suspect]
     Indication: BREAST CANCER METASTATIC
     Dosage: (30 MG/M2, QD), INTRAVENOUS
     Route: 042
     Dates: start: 20110224
  9. CIPRO [Concomitant]
  10. POTASSIUM CHLORIDE [Concomitant]
  11. ALOXI [Concomitant]
  12. IMODIUM [Concomitant]
  13. FENTANYL [Concomitant]
  14. LASIX [Concomitant]
  15. ERLOTINIB HYDROCHLORIDE [Suspect]
     Indication: BREAST CANCER METASTATIC
     Dosage: (100 MG, QD), ORAL
     Route: 048
     Dates: start: 20110224, end: 20110327
  16. ZOFRAN [Concomitant]
  17. DILAUDID [Concomitant]
  18. PERCOCET [Concomitant]
  19. SYNTHROID [Concomitant]
  20. MIRALAX [Concomitant]

REACTIONS (2)
  - LARYNGEAL OEDEMA [None]
  - DYSPHAGIA [None]
